FAERS Safety Report 7249063-9 (Version None)
Quarter: 2011Q1

REPORT INFORMATION
  Report Type: 
  Country: None (occurrence: None)
  Receive Date: 20110128
  Receipt Date: 20110120
  Transmission Date: 20110831
  Serious: Yes (Death, Life-Threatening, Hospitalization, Other)
  Sender: FDA-Public Use
  Company Number: IN-SANOFI-AVENTIS-2010SA073467

PATIENT
  Age: 78 Year
  Sex: Female
  Weight: 65 kg

DRUGS (11)
  1. INDAPAMIDE [Suspect]
     Route: 048
     Dates: start: 20101102, end: 20101111
  2. NEBIVOLOL [Concomitant]
     Route: 065
  3. CALCIUM CARBONATE/COLECALCIFEROL [Concomitant]
     Route: 065
  4. SUPRADYN /NET/ [Concomitant]
     Route: 065
  5. PANTOPRAZOLE [Concomitant]
     Route: 065
  6. LIBRAX [Concomitant]
     Route: 065
  7. RAMIPRIL [Concomitant]
     Route: 065
  8. ATORVASTATIN [Concomitant]
     Route: 065
  9. ISOSORBIDE MONONITRATE [Concomitant]
     Route: 065
  10. CLOPIDOGREL [Concomitant]
     Route: 065
  11. AMLODIPINE [Concomitant]
     Route: 065

REACTIONS (8)
  - SEPSIS [None]
  - MULTI-ORGAN FAILURE [None]
  - OESOPHAGEAL RUPTURE [None]
  - HYPONATRAEMIA [None]
  - VOMITING [None]
  - COMA [None]
  - HYPOKALAEMIA [None]
  - FATIGUE [None]
